FAERS Safety Report 6749882-9 (Version None)
Quarter: 2010Q2

REPORT INFORMATION
  Report Type: 
  Country: None (occurrence: None)
  Receive Date: 20100601
  Receipt Date: 20100518
  Transmission Date: 20101027
  Serious: Yes (Other)
  Sender: FDA-Public Use
  Company Number: US-ELI_LILLY_AND_COMPANY-US201004001190

PATIENT
  Sex: Female

DRUGS (5)
  1. FORTEO [Suspect]
     Indication: OSTEOPOROSIS
     Dosage: 20 UG, EACH EVENING
     Dates: start: 20080901, end: 20100328
  2. FORTEO [Suspect]
     Dosage: 20 UG, 2/D
     Dates: start: 20100327, end: 20100327
  3. LISINOPRIL AND HYDROCHLOROTHIAZIDE [Concomitant]
     Indication: HYPERTENSION
  4. CRESTOR [Concomitant]
     Dosage: 20 MG, UNK
  5. ASPIRIN [Concomitant]
     Dosage: 81 MG, UNK

REACTIONS (14)
  - ABDOMINAL PAIN UPPER [None]
  - ACCIDENTAL OVERDOSE [None]
  - ASTHENIA [None]
  - BLOOD PRESSURE DECREASED [None]
  - COLD SWEAT [None]
  - FALL [None]
  - HEAD INJURY [None]
  - HEADACHE [None]
  - LOSS OF CONSCIOUSNESS [None]
  - MALAISE [None]
  - MEMORY IMPAIRMENT [None]
  - MUSCLE SPASMS [None]
  - PERIORBITAL HAEMATOMA [None]
  - SYNCOPE [None]
